FAERS Safety Report 24765358 (Version 1)
Quarter: 2024Q4

REPORT INFORMATION
  Report Type: Spontaneous
  Country: US (occurrence: US)
  Receive Date: 20241223
  Receipt Date: 20241223
  Transmission Date: 20250114
  Serious: Yes (Other)
  Sender: SANOFI AVENTIS
  Company Number: US-SA-2024SA377616

PATIENT
  Age: 68 Year
  Sex: Male

DRUGS (3)
  1. FLOMAX [Suspect]
     Active Substance: TAMSULOSIN HYDROCHLORIDE
     Indication: Product used for unknown indication
     Dosage: UNK
     Route: 065
  2. ORGOVYX [Suspect]
     Active Substance: RELUGOLIX
     Indication: Prostate cancer
     Dosage: 360 MG, 1X
     Route: 048
     Dates: start: 20240730, end: 20240730
  3. ORGOVYX [Suspect]
     Active Substance: RELUGOLIX
     Dosage: 120 MG, QD
     Route: 048
     Dates: start: 20240731

REACTIONS (9)
  - Neuropathy peripheral [Unknown]
  - Skin exfoliation [Unknown]
  - Biopsy bone marrow [Unknown]
  - Pain [Unknown]
  - Blood potassium decreased [Unknown]
  - Joint swelling [Unknown]
  - Peripheral swelling [Unknown]
  - Hot flush [Unknown]
  - Insomnia [Unknown]

NARRATIVE: CASE EVENT DATE: 20240806
